FAERS Safety Report 10469149 (Version 1)
Quarter: 2014Q3

REPORT INFORMATION
  Report Type: Spontaneous
  Country: US (occurrence: None)
  Receive Date: 20140922
  Receipt Date: 20140922
  Transmission Date: 20150326
  Serious: Yes (Death, Life-Threatening, Disabling, Other)
  Sender: FDA-Public Use
  Company Number: None

PATIENT
  Age: 68 Year
  Sex: Male
  Weight: 90.72 kg

DRUGS (1)
  1. LOVASTATIN. [Suspect]
     Active Substance: LOVASTATIN
     Indication: BLOOD CHOLESTEROL INCREASED

REACTIONS (9)
  - Fall [None]
  - Gait disturbance [None]
  - Brain injury [None]
  - Dizziness [None]
  - Myopathy [None]
  - Vision blurred [None]
  - Progressive supranuclear palsy [None]
  - Impaired self-care [None]
  - Blindness [None]

NARRATIVE: CASE EVENT DATE: 20121209
